FAERS Safety Report 11513669 (Version 1)
Quarter: 2015Q3

REPORT INFORMATION
  Report Type: Spontaneous
  Country: US (occurrence: US)
  Receive Date: 20150903
  Receipt Date: 20150903
  Transmission Date: 20151125
  Serious: No
  Sender: FDA-Public Use
  Company Number: US-ELI_LILLY_AND_COMPANY-US201211006157

PATIENT
  Sex: Female

DRUGS (2)
  1. CYMBALTA [Suspect]
     Active Substance: DULOXETINE HYDROCHLORIDE
     Indication: DEPRESSION
  2. LEXAPRO [Concomitant]
     Active Substance: ESCITALOPRAM OXALATE
     Indication: DEPRESSION

REACTIONS (9)
  - Burning sensation [Unknown]
  - Restlessness [Unknown]
  - Nervousness [Unknown]
  - Depression [Unknown]
  - Hyperhidrosis [Unknown]
  - Lymphadenitis [Unknown]
  - Palpitations [Unknown]
  - Drug ineffective [Unknown]
  - Irritability [Unknown]
